FAERS Safety Report 9948518 (Version 3)
Quarter: 2014Q2

REPORT INFORMATION
  Report Type: Spontaneous
  Country: US (occurrence: US)
  Receive Date: 20140304
  Receipt Date: 20140502
  Transmission Date: 20141212
  Serious: No
  Sender: FDA-Public Use
  Company Number: US-009507513-1402USA013426

PATIENT
  Sex: 0

DRUGS (1)
  1. PRIMAXIN I.V. [Suspect]
     Dosage: 1000 MG, Q8H
     Route: 042
     Dates: start: 20140219

REACTIONS (3)
  - Poor quality drug administered [Unknown]
  - Product quality issue [Unknown]
  - No adverse event [Unknown]
